FAERS Safety Report 21548616 (Version 1)
Quarter: 2022Q4

REPORT INFORMATION
  Report Type: Spontaneous
  Country: US (occurrence: US)
  Receive Date: 20221103
  Receipt Date: 20221103
  Transmission Date: 20230112
  Serious: Yes (Hospitalization, Other)
  Sender: FDA-Public Use
  Company Number: US-drreddys-LIT/USA/22/0156557

PATIENT
  Age: 17 Year

DRUGS (2)
  1. IBUPROFEN [Suspect]
     Active Substance: IBUPROFEN
     Indication: Product used for unknown indication
  2. DIPHENHYDRAMINE HYDROCHLORIDE [Suspect]
     Active Substance: DIPHENHYDRAMINE HYDROCHLORIDE
     Indication: Product used for unknown indication

REACTIONS (10)
  - Toxicity to various agents [Unknown]
  - Shock [Recovering/Resolving]
  - Metabolic acidosis [Recovering/Resolving]
  - Depressed level of consciousness [Recovering/Resolving]
  - Sinus tachycardia [Recovering/Resolving]
  - Acute kidney injury [Recovering/Resolving]
  - Vomiting [Recovering/Resolving]
  - Gastrointestinal haemorrhage [Recovering/Resolving]
  - Intentional overdose [Unknown]
  - Drug screen false positive [Unknown]
